FAERS Safety Report 18383482 (Version 1)
Quarter: 2020Q4

REPORT INFORMATION
  Report Type: Spontaneous
  Country: TH (occurrence: TH)
  Receive Date: 20201014
  Receipt Date: 20201014
  Transmission Date: 20210114
  Serious: Yes (Hospitalization)
  Sender: FDA-Public Use
  Company Number: NVSC2020TH272373

PATIENT
  Sex: Male

DRUGS (1)
  1. SCAPHO [Suspect]
     Active Substance: SECUKINUMAB
     Indication: PSORIASIS
     Dosage: 150 MG, UNKNOWN
     Route: 065

REACTIONS (7)
  - Rash [Unknown]
  - Swelling [Unknown]
  - Skin burning sensation [Unknown]
  - Cellulitis [Unknown]
  - Pain [Unknown]
  - Erythema [Unknown]
  - Underdose [Unknown]
